FAERS Safety Report 9444253 (Version 1)
Quarter: 2013Q3

REPORT INFORMATION
  Report Type: Report from Study
  Country: BR (occurrence: BR)
  Receive Date: 20130807
  Receipt Date: 20130807
  Transmission Date: 20140515
  Serious: Yes (Other)
  Sender: FDA-Public Use
  Company Number: PHHY2013BR084301

PATIENT
  Age: 74 Year
  Sex: Female

DRUGS (5)
  1. FORASEQ [Suspect]
     Indication: ASTHMA
     Dosage: 1 CAPSULE OF EACH TREATMENT, 2 TIMES A DAY
     Dates: start: 2010, end: 2012
  2. FORASEQ [Suspect]
     Dosage: 1 CAPSULE OF EACH TREATMENT 2 TIMES A DAY
     Dates: start: 20130803
  3. ALENIA /01538101/ [Suspect]
     Indication: ASTHMA
     Dosage: 1CAPSULE 2 TIMES A DAY
     Dates: start: 2012, end: 2013
  4. MODURETIC [Concomitant]
     Indication: HYPERTENSION
     Dosage: 1 DF, QD
     Route: 048
  5. LOSARTAN [Concomitant]
     Indication: HYPERTENSION
     Dosage: HALF TABLET IN THE MORNING AND HALF TABLET IN THE AFTERNOON
     Route: 048

REACTIONS (4)
  - Obliterative bronchiolitis [Recovering/Resolving]
  - Gait disturbance [Recovering/Resolving]
  - Asthma [Recovering/Resolving]
  - Wheezing [Recovering/Resolving]
